FAERS Safety Report 16133291 (Version 3)
Quarter: 2024Q4

REPORT INFORMATION
  Report Type: Report from Study
  Country: FR (occurrence: FR)
  Receive Date: 20190329
  Receipt Date: 20241210
  Transmission Date: 20250114
  Serious: Yes (Congenital Anomaly, Other)
  Sender: AUROBINDO
  Company Number: FR-AUROBINDO-AUR-APL-2019-015986

PATIENT

DRUGS (5)
  1. AMOROLFINE [Suspect]
     Active Substance: AMOROLFINE
     Indication: Product used for unknown indication
     Dosage: UNK
     Route: 064
  2. ALENDRONIC ACID [Suspect]
     Active Substance: ALENDRONIC ACID
     Indication: Foetal exposure timing unspecified
     Dosage: UNK
     Route: 064
  3. MYCOPHENOLATE MOFETIL [Suspect]
     Active Substance: MYCOPHENOLATE MOFETIL
     Indication: Product used for unknown indication
     Dosage: UNK
     Route: 064
  4. AZATHIOPRINE [Suspect]
     Active Substance: AZATHIOPRINE
     Indication: Product used for unknown indication
     Dosage: UNK
     Route: 064
  5. CORTICOSTEROID NOS [Concomitant]
     Active Substance: CORTICOSTEROID NOS
     Indication: Product used for unknown indication
     Dosage: UNK
     Route: 064

REACTIONS (13)
  - Congenital aortic anomaly [Not Recovered/Not Resolved]
  - Coloboma [Not Recovered/Not Resolved]
  - Cystic eyeball, congenital [Not Recovered/Not Resolved]
  - Pulmonary malformation [Not Recovered/Not Resolved]
  - Multiple congenital abnormalities [Not Recovered/Not Resolved]
  - Craniofacial deformity [Not Recovered/Not Resolved]
  - Foetal exposure during pregnancy [Unknown]
  - Teratogenicity [Not Recovered/Not Resolved]
  - Congenital hand malformation [Not Recovered/Not Resolved]
  - Congenital cardiovascular anomaly [Not Recovered/Not Resolved]
  - Microphthalmos [Not Recovered/Not Resolved]
  - Epiphyses premature fusion [Not Recovered/Not Resolved]
  - Oesophageal atresia [Not Recovered/Not Resolved]
